FAERS Safety Report 19140237 (Version 1)
Quarter: 2021Q2

REPORT INFORMATION
  Report Type: Spontaneous
  Country: EG (occurrence: EG)
  Receive Date: 20210415
  Receipt Date: 20210415
  Transmission Date: 20210717
  Serious: Yes (Disabling, Other)
  Sender: FDA-Public Use
  Company Number: EG-HIKMA PHARMACEUTICALS USA INC.-EG-H14001-21-01718

PATIENT
  Age: 40 Year
  Sex: Female

DRUGS (1)
  1. UNITAXEL [Suspect]
     Active Substance: PACLITAXEL
     Indication: BREAST CANCER
     Dosage: 120 MG WEEKLY (CYCLE)
     Route: 041

REACTIONS (6)
  - Constipation [Unknown]
  - Epistaxis [Unknown]
  - Hypoacusis [Unknown]
  - Pruritus [Unknown]
  - Bone pain [Unknown]
  - Abdominal rigidity [Unknown]

NARRATIVE: CASE EVENT DATE: 20210315
